FAERS Safety Report 12748554 (Version 1)
Quarter: 2016Q3

REPORT INFORMATION
  Report Type: Spontaneous
  Country: FR (occurrence: FR)
  Receive Date: 20160915
  Receipt Date: 20160915
  Transmission Date: 20161109
  Serious: Yes (Hospitalization)
  Sender: FDA-Public Use
  Company Number: FR-ASTRAZENECA-2016SE97120

PATIENT
  Age: 27790 Day
  Sex: Female

DRUGS (10)
  1. DAFALGAN [Suspect]
     Active Substance: ACETAMINOPHEN
     Indication: PAIN
     Route: 048
     Dates: start: 20160726, end: 20160806
  2. ALPRAZOLAM ARROW [Suspect]
     Active Substance: ALPRAZOLAM
     Indication: INSOMNIA
     Route: 048
     Dates: start: 20160726, end: 20160806
  3. KARDEGIC [Suspect]
     Active Substance: ASPIRIN LYSINE
     Indication: CORONARY ARTERY DISEASE
     Route: 048
     Dates: start: 20160726
  4. TRINITRINE [Suspect]
     Active Substance: NITROGLYCERIN
     Indication: CORONARY ARTERY DISEASE
     Route: 062
     Dates: start: 20160726
  5. BISOCE [Suspect]
     Active Substance: BISOPROLOL
     Indication: CORONARY ARTERY DISEASE
     Dosage: UNKNOWN DOSE, DAILY
     Route: 048
     Dates: start: 20160726
  6. BRILIQUE [Suspect]
     Active Substance: TICAGRELOR
     Indication: CORONARY ARTERY DISEASE
     Dosage: UNKNOWN DOSE, DAILY
     Route: 048
     Dates: start: 20160726
  7. RAMIPRIL ARROW [Suspect]
     Active Substance: RAMIPRIL
     Indication: CARDIAC FAILURE
     Route: 048
     Dates: start: 20160726, end: 20160806
  8. PANTOPRAZOLE SODIUM. [Suspect]
     Active Substance: PANTOPRAZOLE SODIUM
     Indication: PROPHYLAXIS AGAINST GASTROINTESTINAL ULCER
     Route: 048
     Dates: start: 20160726, end: 20160806
  9. GAVISCON [Suspect]
     Active Substance: ALUMINUM HYDROXIDE\MAGNESIUM CARBONATE
     Indication: GASTROOESOPHAGEAL REFLUX DISEASE
     Route: 048
     Dates: start: 20160726, end: 20160806
  10. TAHOR [Suspect]
     Active Substance: ATORVASTATIN CALCIUM
     Indication: HYPERCHOLESTEROLAEMIA
     Route: 048
     Dates: start: 20160726, end: 20160806

REACTIONS (2)
  - Gallbladder enlargement [Unknown]
  - Hepatitis acute [Recovering/Resolving]

NARRATIVE: CASE EVENT DATE: 20160804
